FAERS Safety Report 9992967 (Version 1)
Quarter: 2014Q1

REPORT INFORMATION
  Report Type: Report from Study
  Country: US (occurrence: US)
  Receive Date: 20140310
  Receipt Date: 20140310
  Transmission Date: 20141002
  Serious: Yes (Other)
  Sender: FDA-Public Use
  Company Number: US-ABBVIE-13P-163-1164342-00

PATIENT
  Age: 28 Year
  Sex: Female

DRUGS (10)
  1. LUPRON DEPOT [Suspect]
     Indication: ENDOMETRIOSIS
     Dates: start: 201111, end: 201111
  2. LUPRON DEPOT [Suspect]
     Dates: start: 20130723
  3. LUPRON DEPOT [Suspect]
     Indication: ENDOMETRIOSIS
     Dates: start: 201202, end: 201202
  4. MULTIVITAMIN [Concomitant]
     Indication: PRODUCT USED FOR UNKNOWN INDICATION
     Dosage: DAILY
  5. CALCIUM [Concomitant]
     Indication: PRODUCT USED FOR UNKNOWN INDICATION
     Dosage: DAILY
  6. MAGNESIUM [Concomitant]
     Indication: PRODUCT USED FOR UNKNOWN INDICATION
     Dosage: DAILY
  7. VITAMIN D [Concomitant]
     Indication: PRODUCT USED FOR UNKNOWN INDICATION
     Dosage: DAILY
  8. VITAMIN B12 [Concomitant]
     Indication: PRODUCT USED FOR UNKNOWN INDICATION
     Dosage: DAILY
  9. NORETHINDRONE ACETATE [Concomitant]
     Indication: PRODUCT USED FOR UNKNOWN INDICATION
     Route: 048
     Dates: start: 201111, end: 201202
  10. NORETHINDRONE ACETATE [Concomitant]

REACTIONS (13)
  - Endometriosis [Recovering/Resolving]
  - Abdominal pain [Not Recovered/Not Resolved]
  - Nausea [Recovering/Resolving]
  - Feeling cold [Recovering/Resolving]
  - Decreased appetite [Recovering/Resolving]
  - Nausea [Recovering/Resolving]
  - Feeling cold [Not Recovered/Not Resolved]
  - Abdominal pain [Recovering/Resolving]
  - Helicobacter infection [Recovered/Resolved]
  - Abdominal pain [Recovered/Resolved]
  - Nausea [Not Recovered/Not Resolved]
  - Dizziness [Recovered/Resolved]
  - Hyperhidrosis [Recovered/Resolved]
